FAERS Safety Report 13370417 (Version 1)
Quarter: 2017Q1

REPORT INFORMATION
  Report Type: Spontaneous
  Country: US (occurrence: US)
  Receive Date: 20170324
  Receipt Date: 20170324
  Transmission Date: 20170429
  Serious: No
  Sender: FDA-Public Use
  Company Number: US-ROCHE-1284716

PATIENT
  Age: 22 Year
  Sex: Female
  Weight: 106.59 kg

DRUGS (16)
  1. XOLAIR [Suspect]
     Active Substance: OMALIZUMAB
     Indication: ASTHMA
     Dosage: MOST RECENT DOSE: 26-SEP-2013 (3 DIVIDED DOSE)
     Route: 058
     Dates: start: 20130326
  2. EPIPEN [Concomitant]
     Active Substance: EPINEPHRINE
     Indication: ANAPHYLACTIC REACTION
     Dosage: INJECT IMMEDIATELY FOR ANAPHYLAXIS (0.3MG/0.3ML)
     Route: 030
  3. PROAIR HFA [Concomitant]
     Active Substance: ALBUTEROL SULFATE
     Indication: HEADACHE
     Dosage: 1 OR 2 TABLET AS NEEDED
     Route: 065
  4. MIRENA [Concomitant]
     Active Substance: LEVONORGESTREL
     Route: 065
  5. SINGULAIR [Concomitant]
     Active Substance: MONTELUKAST SODIUM
     Indication: ASTHMA
     Dosage: TAKE AT NIGHT
     Route: 065
  6. CELEXA [Concomitant]
     Active Substance: CITALOPRAM HYDROBROMIDE
     Route: 065
  7. MEDROL [Concomitant]
     Active Substance: METHYLPREDNISOLONE
     Route: 065
  8. ELETRIPTAN [Concomitant]
     Active Substance: ELETRIPTAN
     Dosage: REPEAT AFTER 2 HOURS AS NEEDED
     Route: 065
  9. TOPAMAX [Concomitant]
     Active Substance: TOPIRAMATE
     Indication: MIGRAINE
     Dosage: TAKE 2 TABS A NIGHT, THEN TAKE 3 TABS AS DIRECTED
     Route: 065
  10. CEFTRIAXONE. [Suspect]
     Active Substance: CEFTRIAXONE
     Indication: PRODUCT USED FOR UNKNOWN INDICATION
     Route: 065
  11. ALBUTEROL. [Concomitant]
     Active Substance: ALBUTEROL
     Dosage: 1 VIAL (2MG/3 ML)
     Route: 055
  12. BUTALBITAL [Concomitant]
     Active Substance: BUTALBITAL
     Indication: MIGRAINE
  13. MONTELUKAST SODIUM. [Concomitant]
     Active Substance: MONTELUKAST SODIUM
     Dosage: 1 TABLET EVERY EVENING
     Route: 065
  14. ADVAIR DISKUS [Concomitant]
     Active Substance: FLUTICASONE PROPIONATE\SALMETEROL XINAFOATE
     Dosage: INHALE 1 PUFF EVERY 12 HOURS (500-50 MCG)
     Route: 065
  15. METOCLOPRAMID-HCL [Concomitant]
     Indication: NAUSEA
     Route: 065
  16. IBUPROFEN. [Concomitant]
     Active Substance: IBUPROFEN
     Route: 065

REACTIONS (3)
  - Injection site urticaria [Recovered/Resolved]
  - Swelling [Recovered/Resolved]
  - Drug hypersensitivity [Unknown]

NARRATIVE: CASE EVENT DATE: 20130912
